FAERS Safety Report 8065785-4 (Version None)
Quarter: 2011Q4

REPORT INFORMATION
  Report Type: 
  Country: None (occurrence: None)
  Receive Date: 20111221
  Receipt Date: 20110214
  Transmission Date: 20120403
  Serious: Yes (Other)
  Sender: FDA-Public Use
  Company Number: PHHY2010US88611

PATIENT
  Age: 82 Year
  Sex: Female

DRUGS (3)
  1. BLOOD AND RELATED PRODUCTS (NO INGREDIENTS/SUBSTANCES) [Concomitant]
  2. EXJADE [Suspect]
     Indication: LYMPHOPROLIFERATIVE DISORDER
     Dosage: 1000 MG, QD, ORAL
     Route: 048
     Dates: start: 20100929
  3. EXJADE [Suspect]
     Indication: IRON METABOLISM DISORDER
     Dosage: 1000 MG, QD, ORAL
     Route: 048
     Dates: start: 20100929

REACTIONS (1)
  - OEDEMA PERIPHERAL [None]
